FAERS Safety Report 8284981-4 (Version None)
Quarter: 2012Q2

REPORT INFORMATION
  Report Type: 
  Country: None (occurrence: None)
  Receive Date: 20120413
  Receipt Date: 20110930
  Transmission Date: 20120825
  Serious: No
  Sender: FDA-Public Use
  Company Number: US-ASTRAZENECA-2011SE56152

PATIENT
  Age: 68 Year
  Sex: Male
  Weight: 106.6 kg

DRUGS (3)
  1. GABOPENTIM [Concomitant]
     Indication: PAIN
  2. NEXIUM [Suspect]
     Indication: GASTROOESOPHAGEAL REFLUX DISEASE
     Route: 048
  3. TRILOPTOL [Concomitant]
     Indication: PAIN

REACTIONS (3)
  - GASTROOESOPHAGEAL REFLUX DISEASE [None]
  - DRUG INEFFECTIVE [None]
  - UPPER-AIRWAY COUGH SYNDROME [None]
